FAERS Safety Report 6441672-X (Version None)
Quarter: 2009Q4

REPORT INFORMATION
  Report Type: 
  Country: None (occurrence: None)
  Receive Date: 20091116
  Receipt Date: 20091102
  Transmission Date: 20100525
  Serious: Yes (Disabling)
  Sender: FDA-Public Use
  Company Number: GB-AMGEN-US274244

PATIENT
  Age: 62 Year
  Sex: Female

DRUGS (1)
  1. ENBREL [Suspect]
     Indication: RHEUMATOID ARTHRITIS
     Dosage: UNKNOWN
     Route: 058
     Dates: start: 20040501

REACTIONS (5)
  - CENTRAL NERVOUS SYSTEM LESION [None]
  - HEADACHE [None]
  - MACULAR OEDEMA [None]
  - UVEITIS [None]
  - VISION BLURRED [None]
